FAERS Safety Report 18550525 (Version 2)
Quarter: 2020Q4

REPORT INFORMATION
  Report Type: Spontaneous
  Country: US (occurrence: US)
  Receive Date: 20201126
  Receipt Date: 20201210
  Transmission Date: 20210114
  Serious: Yes (Death, Hospitalization, Other)
  Sender: FDA-Public Use
  Company Number: US-SA-2020SA334374

PATIENT

DRUGS (1)
  1. DUPIXENT [Suspect]
     Active Substance: DUPILUMAB
     Indication: DERMATITIS ATOPIC
     Dosage: 300 MG, QOW
     Route: 058
     Dates: start: 20200904, end: 2020

REACTIONS (4)
  - Death [Fatal]
  - Alcohol withdrawal syndrome [Unknown]
  - Malaise [Unknown]
  - Hepatitis alcoholic [Unknown]

NARRATIVE: CASE EVENT DATE: 2020
